FAERS Safety Report 7984692-6 (Version None)
Quarter: 2011Q4

REPORT INFORMATION
  Report Type: 
  Country: None (occurrence: None)
  Receive Date: 20111216
  Receipt Date: 20111006
  Transmission Date: 20120403
  Serious: No
  Sender: FDA-Public Use
  Company Number: US-GLAXOSMITHKLINE-A0948260A

PATIENT
  Age: 64 Year
  Sex: Female

DRUGS (1)
  1. PROMACTA [Suspect]
     Indication: PRODUCT USED FOR UNKNOWN INDICATION
     Route: 048
     Dates: start: 20110825

REACTIONS (5)
  - FATIGUE [None]
  - CONSTIPATION [None]
  - HEADACHE [None]
  - DIZZINESS [None]
  - NAUSEA [None]
